FAERS Safety Report 17724670 (Version 1)
Quarter: 2020Q2

REPORT INFORMATION
  Report Type: Spontaneous
  Country: US (occurrence: US)
  Receive Date: 20200429
  Receipt Date: 20200429
  Transmission Date: 20200714
  Serious: Yes (Disabling, Other)
  Sender: FDA-Public Use
  Company Number: None

PATIENT
  Sex: Female

DRUGS (2)
  1. TRAVOPROST. [Suspect]
     Active Substance: TRAVOPROST
  2. LATANOPROST. [Suspect]
     Active Substance: LATANOPROST

REACTIONS (2)
  - Eye irritation [None]
  - Eye pruritus [None]
